FAERS Safety Report 4902838-0 (Version None)
Quarter: 2006Q1

REPORT INFORMATION
  Report Type: 
  Country: None (occurrence: None)
  Receive Date: 20060207
  Receipt Date: 20060131
  Transmission Date: 20060701
  Serious: Yes (Other)
  Sender: FDA-Public Use
  Company Number: PHNU2006DE00721

PATIENT
  Sex: Male

DRUGS (1)
  1. EMSELEX EXTENDED RELEASE [Suspect]

REACTIONS (1)
  - ARRHYTHMIA [None]
